FAERS Safety Report 6070228-6 (Version None)
Quarter: 2009Q1

REPORT INFORMATION
  Report Type: 
  Country: None (occurrence: None)
  Receive Date: 20090204
  Receipt Date: 20090128
  Transmission Date: 20090719
  Serious: Yes (Life-Threatening, Hospitalization, Other)
  Sender: FDA-Public Use
  Company Number: TCI2008A05852

PATIENT
  Age: 75 Year
  Sex: Female

DRUGS (7)
  1. LANSOPRAZOLE [Suspect]
     Dosage: 30 MG (30 MG, 1 IN 1 D), PER ORAL
     Route: 048
     Dates: end: 20080331
  2. LOXONIN (LOXOPROFEN SODIUM) (TABLETS) [Suspect]
     Indication: OSTEOARTHRITIS
     Dosage: 180 MG (180 MG, 1 D) PER ORAL
     Route: 048
     Dates: end: 20080331
  3. CRESTOR (ROSVASTATIN CALCIUM) (TABLETS) [Concomitant]
  4. ARTIST (CARVEDILOL) TABLETS [Concomitant]
  5. LUPRAC (TORASEMIDE) (TABLETS) [Concomitant]
  6. COLONEL (POLYCARBOPHIL CALCIUM) (FINE GRANULES) [Concomitant]
  7. ADSORBIN (ALUMINIUM SILICATE) (POWDER) [Concomitant]

REACTIONS (8)
  - COLITIS COLLAGENOUS [None]
  - DIARRHOEA [None]
  - GENERAL PHYSICAL HEALTH DETERIORATION [None]
  - GENERALISED OEDEMA [None]
  - HYPOPROTEINAEMIA [None]
  - HYPOVOLAEMIC SHOCK [None]
  - LYMPHOSTASIS [None]
  - PROTEIN-LOSING GASTROENTEROPATHY [None]
